FAERS Safety Report 23834015 (Version 2)
Quarter: 2024Q2

REPORT INFORMATION
  Report Type: Report from Study
  Country: US (occurrence: None)
  Receive Date: 20240509
  Receipt Date: 20240527
  Transmission Date: 20240717
  Serious: Yes (Death, Disabling, Other)
  Sender: FDA-Public Use
  Company Number: 2024A107409

PATIENT
  Age: 75 Year
  Sex: Female

DRUGS (1)
  1. LYNPARZA [Suspect]
     Active Substance: OLAPARIB
     Indication: Gastric cancer
     Route: 048

REACTIONS (1)
  - Drug ineffective [Fatal]

NARRATIVE: CASE EVENT DATE: 20240422
